FAERS Safety Report 17695641 (Version 2)
Quarter: 2020Q2

REPORT INFORMATION
  Report Type: Spontaneous
  Country: US (occurrence: US)
  Receive Date: 20200422
  Receipt Date: 20200504
  Transmission Date: 20200714
  Serious: Yes (Disabling, Other)
  Sender: FDA-Public Use
  Company Number: US-NAPPMUNDI-USA-2020-0151726

PATIENT
  Sex: Male

DRUGS (2)
  1. OXYCONTIN [Suspect]
     Active Substance: OXYCODONE HYDROCHLORIDE
     Dosage: TITRATING DOSE, Q12H
     Route: 048
     Dates: end: 2018
  2. OXYCONTIN [Suspect]
     Active Substance: OXYCODONE HYDROCHLORIDE
     Indication: PRODUCT USED FOR UNKNOWN INDICATION
     Dosage: 10 MG, Q12H
     Route: 048
     Dates: start: 2016

REACTIONS (12)
  - Substance abuse [Unknown]
  - Drug dependence [Unknown]
  - Amnesia [Unknown]
  - Constipation [Unknown]
  - Disability [Unknown]
  - Pain [Unknown]
  - Loss of personal independence in daily activities [Unknown]
  - Mental disorder [Unknown]
  - Visual impairment [Unknown]
  - Dizziness [Unknown]
  - Dry mouth [Unknown]
  - Depression [Unknown]

NARRATIVE: CASE EVENT DATE: 2016
